FAERS Safety Report 23907964 (Version 2)
Quarter: 2024Q2

REPORT INFORMATION
  Report Type: Spontaneous
  Country: US (occurrence: US)
  Receive Date: 20240528
  Receipt Date: 20240629
  Transmission Date: 20240715
  Serious: No
  Sender: FDA-Public Use
  Company Number: US-TORRENT-00013579

PATIENT
  Age: 66 Year
  Sex: Male

DRUGS (1)
  1. SILDENAFIL [Suspect]
     Active Substance: SILDENAFIL
     Indication: Product used for unknown indication
     Dosage: AS NEEDED, 4 YEARS TOTAL
     Route: 048
     Dates: start: 20240517, end: 20240530

REACTIONS (2)
  - Product substitution issue [Unknown]
  - Drug ineffective [Unknown]
